FAERS Safety Report 8514786-8 (Version None)
Quarter: 2012Q3

REPORT INFORMATION
  Report Type: 
  Country: None (occurrence: None)
  Receive Date: 20120711
  Receipt Date: 20120711
  Transmission Date: 20120928
  Serious: Yes (Disabling)
  Sender: FDA-Public Use
  Company Number: None

PATIENT
  Sex: Male
  Weight: 86.1834 kg

DRUGS (1)
  1. HALFLYTELY [Suspect]
     Indication: COLONOSCOPY
     Dates: start: 20120701, end: 20120701

REACTIONS (3)
  - ABDOMINAL DISCOMFORT [None]
  - POST PROCEDURAL COMPLICATION [None]
  - ABDOMINAL PAIN [None]
